FAERS Safety Report 16687338 (Version 1)
Quarter: 2019Q4

REPORT INFORMATION
  Report Type: Spontaneous
  Country: US (occurrence: US)
  Receive Date: 20190808
  Receipt Date: 20190808
  Transmission Date: 20200122
  Serious: No
  Sender: FDA-Public Use
  Company Number: None

PATIENT
  Age: 37 Year
  Sex: Female
  Weight: 73.8 kg

DRUGS (1)
  1. OFLOXACIN OTIC [Suspect]
     Active Substance: OFLOXACIN
     Indication: OTITIS EXTERNA
     Dosage: ?          QUANTITY:1 DROP(S);?
     Route: 001
     Dates: start: 20190806, end: 20190808

REACTIONS (3)
  - Hypoaesthesia [None]
  - Hypokinesia [None]
  - Ageusia [None]

NARRATIVE: CASE EVENT DATE: 20190806
